FAERS Safety Report 18234251 (Version 3)
Quarter: 2020Q4

REPORT INFORMATION
  Report Type: Report from Study
  Country: None (occurrence: DE)
  Receive Date: 20200904
  Receipt Date: 20201118
  Transmission Date: 20210113
  Serious: Yes (Hospitalization)
  Sender: FDA-Public Use
  Company Number: DE-ABBVIE-20P-062-3545736-00

PATIENT
  Age: 29 Year
  Sex: Female
  Weight: 63 kg

DRUGS (13)
  1. OKOUBASAN [Concomitant]
     Indication: NAUSEA
     Route: 048
     Dates: start: 2013
  2. NUVARING [Concomitant]
     Active Substance: ETHINYL ESTRADIOL\ETONOGESTREL
     Indication: CONTRACEPTION
     Route: 067
     Dates: start: 2013
  3. VITAMIN C [Concomitant]
     Active Substance: ASCORBIC ACID
     Indication: NUTRITIONAL SUPPLEMENTATION
     Route: 048
     Dates: start: 20200318
  4. AQUALIBRA [Concomitant]
     Indication: BLADDER DISORDER
     Route: 048
     Dates: start: 20200308
  5. ZINC. [Concomitant]
     Active Substance: ZINC
     Indication: NUTRITIONAL SUPPLEMENTATION
     Route: 048
     Dates: start: 20200318
  6. KURKUMA [Concomitant]
     Indication: CROHN^S DISEASE
     Route: 048
     Dates: start: 2013
  7. UPADACITINIB [Suspect]
     Active Substance: UPADACITINIB
     Indication: CROHN^S DISEASE
     Route: 048
     Dates: start: 20200817, end: 20200827
  8. UPADACITINIB [Suspect]
     Active Substance: UPADACITINIB
     Route: 048
     Dates: start: 20200905
  9. NOVAMINSULFON [Concomitant]
     Active Substance: METAMIZOLE
     Indication: HEADACHE
     Route: 048
     Dates: start: 2013
  10. LECITHIN [Concomitant]
     Active Substance: LECITHIN
     Indication: CROHN^S DISEASE
     Route: 048
     Dates: start: 2013
  11. EBENOL HYDROCORTISON [Concomitant]
     Indication: PERIORAL DERMATITIS
     Route: 061
     Dates: start: 20200711
  12. VITAMIN D [Concomitant]
     Active Substance: VITAMIN D NOS
     Indication: HYPOVITAMINOSIS
     Route: 048
     Dates: start: 2015
  13. PANTOPRAZOLE [Concomitant]
     Active Substance: PANTOPRAZOLE
     Indication: PROPHYLAXIS
     Route: 048
     Dates: start: 20191101

REACTIONS (1)
  - Pyelonephritis [Recovered/Resolved]

NARRATIVE: CASE EVENT DATE: 20200827
